FAERS Safety Report 4366698-1 (Version None)
Quarter: 2004Q2

REPORT INFORMATION
  Report Type: 
  Country: None (occurrence: None)
  Receive Date: 20040527
  Receipt Date: 20040512
  Transmission Date: 20050107
  Serious: Yes (Hospitalization, Other)
  Sender: FDA-Public Use
  Company Number: 2004S1001388

PATIENT
  Age: 35 Year
  Sex: Female
  Weight: 77.1115 kg

DRUGS (3)
  1. EXTENDED PHENYTOIN SODIUM [Suspect]
     Indication: GRAND MAL CONVULSION
     Dosage: 300MG BID, THEN 600 MG X 1, THEN 200 MG BID ORAL
     Route: 048
     Dates: start: 20021001
  2. TEGRETOL [Suspect]
     Indication: GRAND MAL CONVULSION
     Dosage: 600MG BID ORAL
     Route: 048
     Dates: start: 19730101
  3. TEGRETOL [Suspect]
     Indication: PETIT MAL EPILEPSY
     Dosage: 600MG BID ORAL
     Route: 048
     Dates: start: 19730101

REACTIONS (11)
  - ABASIA [None]
  - APHASIA [None]
  - BALANCE DISORDER [None]
  - CONVULSION [None]
  - DRUG LEVEL CHANGED [None]
  - DRUG LEVEL DECREASED [None]
  - DRUG WITHDRAWAL SYNDROME [None]
  - DYSSTASIA [None]
  - HEADACHE [None]
  - IMPAIRED WORK ABILITY [None]
  - METABOLIC DISORDER [None]
